FAERS Safety Report 21310581 (Version 3)
Quarter: 2022Q4

REPORT INFORMATION
  Report Type: Spontaneous
  Country: US (occurrence: US)
  Receive Date: 20220909
  Receipt Date: 20221121
  Transmission Date: 20230113
  Serious: Yes (Other)
  Sender: FDA-Public Use
  Company Number: US-BIOVITRUM-2022US06216

PATIENT
  Age: 38 Year
  Sex: Female

DRUGS (3)
  1. KINERET [Suspect]
     Active Substance: ANAKINRA
     Indication: Rheumatoid arthritis
     Dates: start: 20220125
  2. KINERET [Suspect]
     Active Substance: ANAKINRA
     Dates: start: 202201
  3. KINERET [Suspect]
     Active Substance: ANAKINRA
     Dates: start: 202201

REACTIONS (4)
  - Rheumatoid arthritis [Unknown]
  - General physical health deterioration [Unknown]
  - Drug ineffective [Unknown]
  - Off label use [Unknown]

NARRATIVE: CASE EVENT DATE: 20220101
